FAERS Safety Report 9024625 (Version 2)
Quarter: 2013Q1

REPORT INFORMATION
  Report Type: Spontaneous
  Country: CA (occurrence: CA)
  Receive Date: 20130120
  Receipt Date: 20130130
  Transmission Date: 20140127
  Serious: Yes (Death)
  Sender: FDA-Public Use
  Company Number: CA-AMGEN-CANSP2013003188

PATIENT
  Age: 62 Year
  Sex: Male
  Weight: 46 kg

DRUGS (1)
  1. XGEVA [Suspect]
     Indication: LUNG NEOPLASM MALIGNANT
     Dosage: 120 ABSENT, QMO
     Route: 058
     Dates: start: 20121002, end: 20121212

REACTIONS (1)
  - Malignant neoplasm progression [Fatal]
